FAERS Safety Report 4589176-3 (Version None)
Quarter: 2005Q1

REPORT INFORMATION
  Report Type: 
  Country: None (occurrence: None)
  Receive Date: 20050215
  Receipt Date: 20050215
  Transmission Date: 20050727
  Serious: Yes (Life-Threatening, Hospitalization)
  Sender: FDA-Public Use
  Company Number: None

PATIENT
  Age: 82 Year
  Sex: Male
  Weight: 114.3065 kg

DRUGS (3)
  1. COUMADIN [Suspect]
     Indication: ULCER HAEMORRHAGE
     Dosage: 2.0 QOD ORAL
     Route: 048
     Dates: start: 20041229, end: 20050207
  2. DICLOFENAC [Concomitant]
  3. ETODOLAC [Concomitant]

REACTIONS (2)
  - INTERNATIONAL NORMALISED RATIO INCREASED [None]
  - PROTHROMBIN TIME PROLONGED [None]
